FAERS Safety Report 18723483 (Version 1)
Quarter: 2021Q1

REPORT INFORMATION
  Report Type: Spontaneous
  Country: BO (occurrence: BO)
  Receive Date: 20210108
  Receipt Date: 20210108
  Transmission Date: 20210419
  Serious: No
  Sender: FDA-Public Use
  Company Number: None

PATIENT
  Age: 57 Year
  Sex: Female
  Weight: 60 kg

DRUGS (5)
  1. WARFARIN [Concomitant]
     Active Substance: WARFARIN
  2. LOSARTAN. [Concomitant]
     Active Substance: LOSARTAN
  3. OMEPRAZOLE. [Concomitant]
     Active Substance: OMEPRAZOLE
  4. ATENOLOL. [Concomitant]
     Active Substance: ATENOLOL
  5. PERTIUM (NEBIVOLOL) 5MG [Suspect]
     Active Substance: NEBIVOLOL
     Indication: HEART RATE DECREASED
     Dosage: ?          QUANTITY:1 TABLET(S);?
     Route: 048
     Dates: start: 20201201, end: 20201228

REACTIONS (4)
  - Swelling of eyelid [None]
  - Head discomfort [None]
  - Swelling face [None]
  - Agitation [None]

NARRATIVE: CASE EVENT DATE: 20201229
